FAERS Safety Report 25989637 (Version 1)
Quarter: 2025Q4

REPORT INFORMATION
  Report Type: Spontaneous
  Country: US (occurrence: None)
  Receive Date: 20251031
  Receipt Date: 20251031
  Transmission Date: 20260117
  Serious: Yes (Hospitalization)
  Sender: FDA-CTU
  Company Number: None

PATIENT
  Age: 68 Year
  Sex: Male

DRUGS (2)
  1. SIROLIMUS [Suspect]
     Active Substance: SIROLIMUS
     Indication: Stem cell transplant
     Dosage: OTHER FREQUENCY : 1 TIME A DAY;?
     Route: 048
     Dates: start: 20250515
  2. JAKAFI [Suspect]
     Active Substance: RUXOLITINIB

REACTIONS (4)
  - Urinary tract infection [None]
  - Cystitis [None]
  - Kidney infection [None]
  - Oropharyngeal pain [None]

NARRATIVE: CASE EVENT DATE: 20250904
